FAERS Safety Report 11043979 (Version 2)
Quarter: 2021Q1

REPORT INFORMATION
  Report Type: Spontaneous
  Country: CA (occurrence: CA)
  Receive Date: 20150417
  Receipt Date: 20210122
  Transmission Date: 20210419
  Serious: Yes (Death, Hospitalization)
  Sender: FDA-Public Use
  Company Number: CA-PFIZER INC-2015125616

PATIENT
  Age: 38 Year
  Sex: Female

DRUGS (2)
  1. CARIPUL [Concomitant]
     Active Substance: EPOPROSTENOL
     Dosage: UNK
  2. REVATIO [Suspect]
     Active Substance: SILDENAFIL CITRATE
     Indication: PULMONARY ARTERIAL HYPERTENSION
     Dosage: 20 MG, 3X/DAY
     Route: 048
     Dates: start: 20121112

REACTIONS (1)
  - Complications of transplant surgery [Fatal]

NARRATIVE: CASE EVENT DATE: 20150403
